FAERS Safety Report 20439379 (Version 2)
Quarter: 2022Q2

REPORT INFORMATION
  Report Type: Spontaneous
  Country: NL (occurrence: NL)
  Receive Date: 20220207
  Receipt Date: 20220512
  Transmission Date: 20220721
  Serious: Yes (Other)
  Sender: FDA-Public Use
  Company Number: NL-BAUSCH-BL-2022-003153

PATIENT
  Age: 43 Year

DRUGS (2)
  1. HYDROCORTISONE [Suspect]
     Active Substance: HYDROCORTISONE
     Indication: COVID-19
     Dosage: SHOCK PROTOCOL
     Route: 065
     Dates: start: 2020, end: 2020
  2. TOCILIZUMAB [Suspect]
     Active Substance: TOCILIZUMAB
     Indication: COVID-19
     Route: 065
     Dates: start: 2020

REACTIONS (1)
  - Lower gastrointestinal perforation [Unknown]

NARRATIVE: CASE EVENT DATE: 20200101
